FAERS Safety Report 6497302-4 (Version None)
Quarter: 2009Q4

REPORT INFORMATION
  Report Type: 
  Country: None (occurrence: None)
  Receive Date: 20091215
  Receipt Date: 20090821
  Transmission Date: 20100525
  Serious: No
  Sender: FDA-Public Use
  Company Number: A0804634A

PATIENT
  Sex: Male

DRUGS (1)
  1. AVODART [Suspect]
     Route: 048

REACTIONS (3)
  - DRUG INEFFECTIVE [None]
  - NOCTURIA [None]
  - URINARY INCONTINENCE [None]
